FAERS Safety Report 11087857 (Version 1)
Quarter: 2015Q2

REPORT INFORMATION
  Report Type: Report from Study
  Country: US (occurrence: US)
  Receive Date: 20150504
  Receipt Date: 20150504
  Transmission Date: 20150821
  Serious: Yes (Other)
  Sender: FDA-Public Use
  Company Number: PHEH2015US007724

PATIENT
  Age: 50 Year
  Sex: Female

DRUGS (2)
  1. TEGRETOL-XR [Suspect]
     Active Substance: CARBAMAZEPINE
     Dosage: 800 MG, UNK
     Route: 048
  2. TEGRETOL-XR [Suspect]
     Active Substance: CARBAMAZEPINE
     Indication: PRODUCT USED FOR UNKNOWN INDICATION
     Dosage: 400 MG, UNK
     Route: 048

REACTIONS (2)
  - Seizure [Unknown]
  - Anxiety [Unknown]

NARRATIVE: CASE EVENT DATE: 201412
